FAERS Safety Report 12501309 (Version 2)
Quarter: 2016Q3

REPORT INFORMATION
  Report Type: Report from Study
  Country: US (occurrence: US)
  Receive Date: 20160627
  Receipt Date: 20160705
  Transmission Date: 20161109
  Serious: Yes (Other)
  Sender: FDA-Public Use
  Company Number: US-AMGEN-USASL2016080000

PATIENT
  Age: 60 Year
  Sex: Female

DRUGS (1)
  1. ENBREL [Suspect]
     Active Substance: ETANERCEPT
     Indication: PSORIATIC ARTHROPATHY
     Dosage: 50 MG, QWK
     Route: 065
     Dates: start: 20160524

REACTIONS (6)
  - Sputum discoloured [Unknown]
  - Infection susceptibility increased [Unknown]
  - Pyrexia [Unknown]
  - Productive cough [Unknown]
  - Cough [Recovering/Resolving]
  - Dysphonia [Unknown]

NARRATIVE: CASE EVENT DATE: 2016
